FAERS Safety Report 19458813 (Version 1)
Quarter: 2021Q2

REPORT INFORMATION
  Report Type: Spontaneous
  Country: US (occurrence: US)
  Receive Date: 20210625
  Receipt Date: 20210625
  Transmission Date: 20210717
  Serious: No
  Sender: FDA-Public Use
  Company Number: None

PATIENT
  Age: 74 Year
  Sex: Male
  Weight: 139 kg

DRUGS (1)
  1. CEFAZOLIN (CEFAZOLIN NA 1GM/VIL INJ) [Suspect]
     Active Substance: CEFAZOLIN
     Indication: SURGERY
     Route: 042
     Dates: start: 20210610, end: 20210610

REACTIONS (3)
  - Rash [None]
  - Angioedema [None]
  - Mouth swelling [None]

NARRATIVE: CASE EVENT DATE: 20210610
